FAERS Safety Report 16843843 (Version 2)
Quarter: 2019Q3

REPORT INFORMATION
  Report Type: Spontaneous
  Country: BR (occurrence: BR)
  Receive Date: 20190924
  Receipt Date: 20190925
  Transmission Date: 20191005
  Serious: Yes (Other)
  Sender: FDA-Public Use
  Company Number: BR-PFIZER INC-2019405810

PATIENT
  Age: 72 Year
  Sex: Female

DRUGS (1)
  1. XALATAN [Suspect]
     Active Substance: LATANOPROST
     Indication: INTRAOCULAR PRESSURE TEST
     Dosage: 2 GTT, DAILY: A DROP IN BOTH SIGHTS AT NIGHT
     Route: 047
     Dates: start: 2019, end: 2019

REACTIONS (3)
  - Glaucoma [Unknown]
  - Cataract [Unknown]
  - Vision blurred [Unknown]
